FAERS Safety Report 18793225 (Version 1)
Quarter: 2021Q1

REPORT INFORMATION
  Report Type: Spontaneous
  Country: US (occurrence: US)
  Receive Date: 20210127
  Receipt Date: 20210127
  Transmission Date: 20210419
  Serious: No
  Sender: FDA-Public Use
  Company Number: US-BAYER-2021-040689

PATIENT
  Sex: Male

DRUGS (2)
  1. ALEVE [Suspect]
     Active Substance: NAPROXEN SODIUM
     Indication: HUMERUS FRACTURE
  2. ALEVE [Suspect]
     Active Substance: NAPROXEN SODIUM
     Indication: CERVICAL VERTEBRAL FRACTURE
     Dosage: UNK

REACTIONS (1)
  - Product use in unapproved indication [Unknown]
